FAERS Safety Report 25780893 (Version 1)
Quarter: 2025Q3

REPORT INFORMATION
  Report Type: Spontaneous
  Country: LB (occurrence: US)
  Receive Date: 20250909
  Receipt Date: 20250909
  Transmission Date: 20251021
  Serious: No
  Sender: BAYER HEALTHCARE PHARMACEUTICALS INC.
  Company Number: LB-BAYER-2025A117624

PATIENT
  Age: 65 Year
  Sex: Male

DRUGS (7)
  1. NEXAVAR [Suspect]
     Active Substance: SORAFENIB
     Indication: Acute myeloid leukaemia
  2. NEXAVAR [Suspect]
     Active Substance: SORAFENIB
     Indication: FLT3 gene mutation
  3. DAUNORUBICIN [Concomitant]
     Active Substance: DAUNORUBICIN
  4. VENETOCLAX [Concomitant]
     Active Substance: VENETOCLAX
  5. CLADRIBINE [Concomitant]
     Active Substance: CLADRIBINE
  6. CYTARABINE [Concomitant]
     Active Substance: CYTARABINE
  7. IDARUBICIN [Concomitant]
     Active Substance: IDARUBICIN

REACTIONS (2)
  - Product use in unapproved indication [None]
  - Product prescribing issue [None]
